FAERS Safety Report 24214299 (Version 1)
Quarter: 2024Q3

REPORT INFORMATION
  Report Type: Spontaneous
  Country: US (occurrence: None)
  Receive Date: 20240814
  Receipt Date: 20240814
  Transmission Date: 20241017
  Serious: Yes (Life-Threatening, Hospitalization)
  Sender: Public
  Company Number: None

PATIENT
  Age: 84 Year
  Sex: Female
  Weight: 72.9 kg

DRUGS (8)
  1. IOPAMIDOL [Suspect]
     Active Substance: IOPAMIDOL
     Indication: Liver disorder
     Dosage: 100 ML ONCE INTRAVENOUS
     Route: 042
  2. AMLODIPINE [Concomitant]
     Active Substance: AMLODIPINE BESYLATE
  3. HYDROCHLOROTHIAZIDE\TRIAMTERENE [Concomitant]
     Active Substance: HYDROCHLOROTHIAZIDE\TRIAMTERENE
  4. CARVEDILOL [Concomitant]
     Active Substance: CARVEDILOL
  5. HYDRALAZINE [Concomitant]
     Active Substance: HYDRALAZINE HYDROCHLORIDE
  6. INSULIN LISPRO [Concomitant]
     Active Substance: INSULIN LISPRO
  7. LOSARTAN [Concomitant]
     Active Substance: LOSARTAN\LOSARTAN POTASSIUM
  8. REPAGLINIDE [Concomitant]
     Active Substance: REPAGLINIDE

REACTIONS (4)
  - Unresponsive to stimuli [None]
  - Pulseless electrical activity [None]
  - Cardiac arrest [None]
  - Infusion related reaction [None]

NARRATIVE: CASE EVENT DATE: 20240810
